FAERS Safety Report 4595615-4 (Version None)
Quarter: 2005Q1

REPORT INFORMATION
  Report Type: 
  Country: None (occurrence: None)
  Receive Date: 20050224
  Receipt Date: 20050208
  Transmission Date: 20050727
  Serious: Yes (Death, Hospitalization)
  Sender: FDA-Public Use
  Company Number: WAES 0410GBR00275

PATIENT
  Age: 70 Year
  Sex: Male

DRUGS (2)
  1. VIOXX [Suspect]
     Indication: NEOPLASM PROPHYLAXIS
     Dosage: 25 MG/DAILY
     Route: 048
     Dates: start: 20030723, end: 20040510
  2. ALLOPURINOL [Concomitant]

REACTIONS (5)
  - CARDIO-RESPIRATORY ARREST [None]
  - INFECTION [None]
  - PNEUMONIA [None]
  - POST PROCEDURAL COMPLICATION [None]
  - THERAPY NON-RESPONDER [None]
